FAERS Safety Report 9072608 (Version 1)
Quarter: 2013Q1

REPORT INFORMATION
  Report Type: Report from Study
  Country: US (occurrence: US)
  Receive Date: 20130129
  Receipt Date: 20130129
  Transmission Date: 20140127
  Serious: No
  Sender: FDA-Public Use
  Company Number: US-ABBOTT-12P-163-0929567-00

PATIENT
  Sex: Female
  Weight: 68.1 kg

DRUGS (10)
  1. HUMIRA 40 MG/0.8 ML PEN [Suspect]
     Indication: CROHN^S DISEASE
     Dates: start: 20111003
  2. PENTASA [Concomitant]
     Indication: CROHN^S DISEASE
  3. COLESTIPOL [Concomitant]
     Indication: CROHN^S DISEASE
  4. MULTIVITAMINS [Concomitant]
     Indication: VITAMIN SUPPLEMENTATION
  5. ROBINUL [Concomitant]
     Indication: CROHN^S DISEASE
  6. BENICAR [Concomitant]
     Indication: HYPERTENSION
  7. IRON [Concomitant]
     Indication: MINERAL SUPPLEMENTATION
  8. ALEVE [Concomitant]
     Indication: ARTHRITIS ENTEROPATHIC
  9. OMEPRAZOLE [Concomitant]
     Indication: DYSPEPSIA
  10. CYANOCOBALAMIN [Concomitant]
     Indication: CROHN^S DISEASE

REACTIONS (2)
  - Pruritus [Recovered/Resolved]
  - Pruritus [Recovered/Resolved]
